FAERS Safety Report 7817996-8 (Version None)
Quarter: 2011Q4

REPORT INFORMATION
  Report Type: 
  Country: None (occurrence: None)
  Receive Date: 20111017
  Receipt Date: 20111004
  Transmission Date: 20120403
  Serious: Yes (Other)
  Sender: FDA-Public Use
  Company Number: CA-JNJFOC-20111000939

PATIENT
  Sex: Female
  Weight: 42 kg

DRUGS (7)
  1. PREDNISONE [Concomitant]
  2. VITAMIN D [Concomitant]
  3. REMICADE [Suspect]
     Indication: CROHN'S DISEASE
     Dosage: 100MG/10ML; PATIENT RECEIVE APPROXIMATELY 25 INFUSIONS
     Route: 042
     Dates: start: 20080910, end: 20110109
  4. FOLIC ACID [Concomitant]
     Dates: start: 20100301, end: 20110901
  5. REMICADE [Suspect]
     Indication: RHEUMATOID ARTHRITIS
     Dosage: 100MG/10ML; PATIENT RECEIVE APPROXIMATELY 25 INFUSIONS
     Route: 042
     Dates: start: 20080910, end: 20110109
  6. IRON [Concomitant]
  7. METHOTREXATE [Concomitant]
     Indication: RHEUMATOID ARTHRITIS
     Dosage: ALSO REPORTED AS ONGOING
     Dates: start: 20100301, end: 20110901

REACTIONS (1)
  - ANAPLASTIC LARGE CELL LYMPHOMA T- AND NULL-CELL TYPES [None]
